FAERS Safety Report 8115907-1 (Version None)
Quarter: 2012Q1

REPORT INFORMATION
  Report Type: 
  Country: None (occurrence: None)
  Receive Date: 20120206
  Receipt Date: 20120126
  Transmission Date: 20120608
  Serious: Yes (Other)
  Sender: FDA-Public Use
  Company Number: GB-ROCHE-1030603

PATIENT
  Weight: 27.6 kg

DRUGS (5)
  1. FOLIC ACID [Concomitant]
     Indication: JUVENILE ARTHRITIS
     Route: 048
  2. ACTEMRA [Suspect]
     Indication: JUVENILE ARTHRITIS
     Route: 042
     Dates: start: 20111101, end: 20111219
  3. METHOTREXATE [Concomitant]
     Indication: JUVENILE ARTHRITIS
     Route: 058
  4. LANSOPRAZOLE [Concomitant]
     Indication: JUVENILE ARTHRITIS
     Route: 048
  5. PREDNISOLONE [Concomitant]
     Indication: JUVENILE ARTHRITIS
     Route: 048

REACTIONS (2)
  - CHEST DISCOMFORT [None]
  - WHITE BLOOD CELL COUNT INCREASED [None]
